FAERS Safety Report 4768650-0 (Version None)
Quarter: 2005Q3

REPORT INFORMATION
  Report Type: 
  Country: None (occurrence: None)
  Receive Date: 20050913
  Receipt Date: 20050829
  Transmission Date: 20060218
  Serious: Yes (Other)
  Sender: FDA-Public Use
  Company Number: 2004-118567-NL

PATIENT
  Age: 32 Year
  Sex: Female

DRUGS (2)
  1. NUVARING [Suspect]
     Indication: CONTRACEPTION
     Dosage: VAGINAL
     Route: 067
     Dates: start: 20030101, end: 20030708
  2. MACROBID [Concomitant]

REACTIONS (14)
  - BLOOD PRESSURE INCREASED [None]
  - CAESAREAN SECTION [None]
  - CYSTITIS [None]
  - DRUG EXPOSURE DURING PREGNANCY [None]
  - DRUG INEFFECTIVE [None]
  - DYSPAREUNIA [None]
  - DYSURIA [None]
  - KIDNEY INFECTION [None]
  - MEDICAL DEVICE DISCOMFORT [None]
  - MENSTRUAL DISCOMFORT [None]
  - NAUSEA [None]
  - PREGNANCY WITH CONTRACEPTIVE DEVICE [None]
  - SCAR [None]
  - VAGINAL DISORDER [None]
